FAERS Safety Report 22082639 (Version 2)
Quarter: 2023Q1

REPORT INFORMATION
  Report Type: Spontaneous
  Country: US (occurrence: US)
  Receive Date: 20230310
  Receipt Date: 20230324
  Transmission Date: 20230418
  Serious: Yes (Hospitalization, Other)
  Sender: FDA-Public Use
  Company Number: US-UNITED THERAPEUTICS-UNT-2023-005999

PATIENT
  Age: 65 Year
  Sex: Female
  Weight: 77.098 kg

DRUGS (3)
  1. REMODULIN [Suspect]
     Active Substance: TREPROSTINIL
     Indication: Pulmonary arterial hypertension
     Dosage: 0.023 ?G/KG, CONTINUING
     Route: 041
  2. REMODULIN [Suspect]
     Active Substance: TREPROSTINIL
     Dosage: UNK, CONTINUING
     Route: 041
     Dates: start: 20220823
  3. WARFARIN SODIUM [Concomitant]
     Active Substance: WARFARIN SODIUM
     Indication: Product used for unknown indication
     Dosage: UNK
     Route: 065

REACTIONS (9)
  - Metapneumovirus pneumonia [Recovered/Resolved]
  - Hypoxia [Recovering/Resolving]
  - Chronic obstructive pulmonary disease [Unknown]
  - Gastroenteritis viral [Unknown]
  - Rhinorrhoea [Unknown]
  - Fatigue [Unknown]
  - Hypersomnia [Unknown]
  - Diarrhoea [Unknown]
  - Device dislocation [Unknown]

NARRATIVE: CASE EVENT DATE: 20230301
